FAERS Safety Report 25259218 (Version 1)
Quarter: 2025Q2

REPORT INFORMATION
  Report Type: Spontaneous
  Country: US (occurrence: None)
  Receive Date: 20250501
  Receipt Date: 20250501
  Transmission Date: 20250716
  Serious: Yes (Hospitalization)
  Sender: FDA-CTU
  Company Number: None

PATIENT
  Sex: Female

DRUGS (1)
  1. TASIMELTEON [Suspect]
     Active Substance: TASIMELTEON
     Indication: Circadian rhythm sleep disorder
     Dosage: FREQUENCY : DAILY;?
     Route: 048
     Dates: start: 20250222

REACTIONS (2)
  - Hospitalisation [None]
  - Intentional dose omission [None]
